FAERS Safety Report 6846213-0 (Version None)
Quarter: 2010Q3

REPORT INFORMATION
  Report Type: 
  Country: None (occurrence: None)
  Receive Date: 20100715
  Receipt Date: 20070912
  Transmission Date: 20110219
  Serious: No
  Sender: FDA-Public Use
  Company Number: US-PFIZER INC-2007076747

PATIENT
  Sex: Female
  Weight: 83.636 kg

DRUGS (4)
  1. CHANTIX [Suspect]
     Indication: SMOKING CESSATION THERAPY
     Dosage: 1
     Dates: start: 20070101, end: 20070912
  2. VYTORIN [Concomitant]
  3. PLAVIX [Concomitant]
  4. NEXIUM [Concomitant]

REACTIONS (3)
  - ABDOMINAL PAIN UPPER [None]
  - DIZZINESS [None]
  - OESOPHAGEAL PAIN [None]
